FAERS Safety Report 15573303 (Version 2)
Quarter: 2024Q1

REPORT INFORMATION
  Report Type: Spontaneous
  Country: ES (occurrence: ES)
  Receive Date: 20181101
  Receipt Date: 20240112
  Transmission Date: 20240410
  Serious: Yes (Other)
  Sender: FDA-Public Use
  Company Number: ES-AUROBINDO-AUR-APL-2018-052655

PATIENT
  Age: 96 Year
  Sex: Male
  Weight: 75 kg

DRUGS (1)
  1. MOXIFLOXACIN [Suspect]
     Active Substance: MOXIFLOXACIN
     Indication: Respiratory tract infection
     Dosage: 400 MILLIGRAM, DAILY
     Route: 048
     Dates: start: 20180916, end: 20180916

REACTIONS (5)
  - Pallor [Recovering/Resolving]
  - Hyperhidrosis [Recovering/Resolving]
  - Extrasystoles [Recovering/Resolving]
  - Cardiac failure [Recovering/Resolving]
  - Malaise [Recovering/Resolving]

NARRATIVE: CASE EVENT DATE: 20180916
